FAERS Safety Report 8354858-4 (Version None)
Quarter: 2012Q2

REPORT INFORMATION
  Report Type: 
  Country: None (occurrence: None)
  Receive Date: 20120511
  Receipt Date: 20120511
  Transmission Date: 20120825
  Serious: Yes (Death)
  Sender: FDA-Public Use
  Company Number: CN-JNJFOC-20110702789

PATIENT
  Sex: Male
  Weight: 60 kg

DRUGS (2)
  1. SPORANOX [Suspect]
     Indication: PNEUMONIA FUNGAL
     Route: 042
     Dates: start: 20110706, end: 20110706
  2. SPORANOX [Suspect]
     Indication: PULMONARY MYCOSIS
     Route: 042
     Dates: start: 20110706, end: 20110706

REACTIONS (1)
  - DEATH [None]
